FAERS Safety Report 9230298 (Version 1)
Quarter: 2013Q2

REPORT INFORMATION
  Report Type: Spontaneous
  Country: US (occurrence: None)
  Receive Date: 20130411
  Receipt Date: 20130411
  Transmission Date: 20140414
  Serious: Yes (Hospitalization, Other)
  Sender: FDA-Public Use
  Company Number: 001508944A

PATIENT
  Age: 32 Year
  Sex: Female

DRUGS (2)
  1. PROACTIV RENEWING CLEANSER [Suspect]
     Indication: ACNE
     Dosage: DERMAL
     Dates: start: 20121115, end: 20130314
  2. PROACTIV REPAIRING TREATMENT [Suspect]
     Indication: ACNE
     Dosage: DERMAL
     Dates: start: 20121115, end: 20130314

REACTIONS (7)
  - Swelling face [None]
  - Pruritus [None]
  - Eye swelling [None]
  - Eye pain [None]
  - Ocular hyperaemia [None]
  - Eye irritation [None]
  - Eye pruritus [None]
